FAERS Safety Report 9246761 (Version 1)
Quarter: 2013Q2

REPORT INFORMATION
  Report Type: Spontaneous
  Country: US (occurrence: US)
  Receive Date: 20130422
  Receipt Date: 20130422
  Transmission Date: 20140414
  Serious: Yes (Other)
  Sender: FDA-Public Use
  Company Number: US-BAYER-2013-047543

PATIENT
  Age: 2 Year
  Sex: Female

DRUGS (2)
  1. PHILLIPS^ MILK OF MAGNESIA [Suspect]
     Indication: DERMATITIS DIAPER
     Dosage: 1 DOSE, BID
     Route: 061
     Dates: start: 201301
  2. PHILLIPS^ MILK OF MAGNESIA [Suspect]
     Indication: DERMATITIS DIAPER
     Dosage: 1 DOSE, BID
     Route: 061
     Dates: start: 201304

REACTIONS (3)
  - Convulsion [Recovered/Resolved]
  - Convulsion [Recovered/Resolved]
  - Off label use [None]
